FAERS Safety Report 16020848 (Version 1)
Quarter: 2019Q1

REPORT INFORMATION
  Report Type: Report from Study
  Country: AU (occurrence: AU)
  Receive Date: 20190301
  Receipt Date: 20190301
  Transmission Date: 20190418
  Serious: Yes (Other)
  Sender: FDA-Public Use
  Company Number: AU-ROCHE-2269680

PATIENT

DRUGS (1)
  1. DORNASE ALFA. [Suspect]
     Active Substance: DORNASE ALFA
     Indication: INCREASED BRONCHIAL SECRETION
     Dosage: 2.5 ML (2.5 MG)
     Route: 050

REACTIONS (1)
  - Haemoptysis [Unknown]
